FAERS Safety Report 7391555-6 (Version None)
Quarter: 2011Q2

REPORT INFORMATION
  Report Type: 
  Country: None (occurrence: None)
  Receive Date: 20110404
  Receipt Date: 20110316
  Transmission Date: 20111010
  Serious: Yes (Death, Other)
  Sender: FDA-Public Use
  Company Number: US-BAYER-200922401NA

PATIENT
  Sex: Male
  Weight: 90.703 kg

DRUGS (10)
  1. SUFENTANIL [Concomitant]
     Dosage: UNK
     Dates: start: 19991210
  2. MIDAZOLAM HCL [Concomitant]
     Dosage: UNK
     Dates: start: 19991210
  3. EPINEPHRINE [Concomitant]
     Dosage: UNK
     Dates: start: 19991210
  4. PROTAMINE SULFATE [Concomitant]
     Dosage: UNK
     Dates: start: 19991210
  5. VANCOMYCIN [Concomitant]
     Dosage: UNK
     Dates: start: 19991210
  6. DECADRON [Concomitant]
     Dosage: UNK
     Dates: start: 19991210
  7. PRIMACOR [Concomitant]
     Dosage: UNK
     Dates: start: 19991210
  8. TRASYLOL [Suspect]
     Indication: PRODUCT USED FOR UNKNOWN INDICATION
     Dosage: 100 ML, UNK
     Route: 042
     Dates: start: 19991210, end: 19991210
  9. HEPARIN SODIUM [Concomitant]
     Dosage: UNK
     Dates: start: 19991210
  10. PANCURONIUM BROMIDE [Concomitant]
     Dosage: UNK
     Dates: start: 19991210

REACTIONS (12)
  - RENAL FAILURE [None]
  - ANXIETY [None]
  - DEATH [None]
  - PAIN [None]
  - RENAL IMPAIRMENT [None]
  - UNEVALUABLE EVENT [None]
  - INJURY [None]
  - FEAR [None]
  - ANHEDONIA [None]
  - RENAL INJURY [None]
  - EMOTIONAL DISTRESS [None]
  - STRESS [None]
